FAERS Safety Report 5060335-9 (Version None)
Quarter: 2006Q3

REPORT INFORMATION
  Report Type: 
  Country: None (occurrence: None)
  Receive Date: 20060718
  Receipt Date: 20060707
  Transmission Date: 20061208
  Serious: Yes (Hospitalization)
  Sender: FDA-Public Use
  Company Number: US200607001248

PATIENT
  Age: 37 Year
  Sex: Male

DRUGS (4)
  1. CYMBALTA [Suspect]
     Indication: DEPRESSION
     Dosage: MG
     Dates: start: 20050101
  2. CYMBALTA [Suspect]
     Indication: DEPRESSION
     Dosage: MG
     Dates: start: 20060101
  3. ABILIFY [Concomitant]
  4. ALCOHOL (ETHANOL) [Concomitant]

REACTIONS (8)
  - DIALYSIS [None]
  - HEPATIC FAILURE [None]
  - HEPATIC NECROSIS [None]
  - NAUSEA [None]
  - RENAL FAILURE [None]
  - SMOOTH MUSCLE ANTIBODY POSITIVE [None]
  - SOMNOLENCE [None]
  - VOMITING [None]
